FAERS Safety Report 12342139 (Version 1)
Quarter: 2016Q2

REPORT INFORMATION
  Report Type: Spontaneous
  Country: US (occurrence: US)
  Receive Date: 20160506
  Receipt Date: 20160506
  Transmission Date: 20160815
  Serious: No
  Sender: FDA-Public Use
  Company Number: US-ANACOR-2016ANA00038

PATIENT
  Sex: Female
  Weight: 58.96 kg

DRUGS (3)
  1. KERYDIN [Suspect]
     Active Substance: TAVABOROLE
     Indication: ONYCHOMYCOSIS
     Dosage: 1 DOSAGE UNITS, 1X/DAY
     Route: 061
     Dates: start: 2015
  2. SYNTHROID [Concomitant]
     Active Substance: LEVOTHYROXINE SODIUM
     Dosage: 0.75 MG, 1X/DAY
  3. CARVEDILOL. [Concomitant]
     Active Substance: CARVEDILOL
     Dosage: 12.5 MG, 2X/DAY

REACTIONS (3)
  - Drug effect incomplete [Unknown]
  - Drug dose omission [Recovered/Resolved]
  - Malaise [Unknown]

NARRATIVE: CASE EVENT DATE: 201511
